FAERS Safety Report 19224101 (Version 1)
Quarter: 2021Q2

REPORT INFORMATION
  Report Type: Spontaneous
  Country: US (occurrence: US)
  Receive Date: 20210505
  Receipt Date: 20210505
  Transmission Date: 20210717
  Serious: No
  Sender: FDA-Public Use
  Company Number: US-ROCHE-2618990

PATIENT
  Sex: Male

DRUGS (1)
  1. ESBRIET [Suspect]
     Active Substance: PIRFENIDONE
     Indication: EMPHYSEMA
     Dosage: RX2 TAKE THREE TABLETS BY MOUTH THREE TIMES A DAY WITH MEAL
     Route: 048

REACTIONS (3)
  - Rash [Unknown]
  - Intentional product use issue [Unknown]
  - Off label use [Unknown]
